FAERS Safety Report 15292909 (Version 1)
Quarter: 2018Q3

REPORT INFORMATION
  Report Type: Spontaneous
  Country: US (occurrence: US)
  Receive Date: 20180806
  Receipt Date: 20180806
  Transmission Date: 20181010
  Serious: Yes (Life-Threatening, Disabling, Other)
  Sender: FDA-Public Use
  Company Number: None

PATIENT
  Age: 46 Year
  Sex: Female
  Weight: 47.7 kg

DRUGS (1)
  1. AMOXICILLIN?CLAV [Suspect]
     Active Substance: AMOXICILLIN\CLAVULANATE POTASSIUM
     Indication: INFECTION
     Dosage: ?          QUANTITY:20 TABLET(S);?
     Route: 048

REACTIONS (8)
  - Staphylococcal infection [None]
  - Erythema [None]
  - Headache [None]
  - Pain in extremity [None]
  - Musculoskeletal stiffness [None]
  - Seizure [None]
  - Rash erythematous [None]
  - Rash [None]

NARRATIVE: CASE EVENT DATE: 20180806
